FAERS Safety Report 9491403 (Version 1)
Quarter: 2013Q3

REPORT INFORMATION
  Report Type: Spontaneous
  Country: FR (occurrence: FR)
  Receive Date: 20130830
  Receipt Date: 20130830
  Transmission Date: 20140515
  Serious: Yes (Hospitalization)
  Sender: FDA-Public Use
  Company Number: FR-B.I. PHARMACEUTICALS,INC./RIDGEFIELD-2013-FF-02168FF

PATIENT
  Age: 83 Year
  Sex: Female

DRUGS (9)
  1. PRADAXA [Suspect]
     Dosage: 220 MG
     Route: 048
     Dates: start: 20130313, end: 20130502
  2. COVERSYL [Concomitant]
  3. BISOCE [Concomitant]
  4. HEMIGOXINE NATIVELLE [Concomitant]
  5. GLICLAZIDE [Concomitant]
  6. LASILIX [Concomitant]
  7. METFORMINE [Concomitant]
  8. DIFFU K [Concomitant]
     Route: 048
  9. OFLOCET [Concomitant]

REACTIONS (2)
  - Product measured potency issue [Recovered/Resolved]
  - Deep vein thrombosis [Recovered/Resolved]
